FAERS Safety Report 19080630 (Version 1)
Quarter: 2021Q1

REPORT INFORMATION
  Report Type: Spontaneous
  Country: US (occurrence: US)
  Receive Date: 20210331
  Receipt Date: 20210331
  Transmission Date: 20210420
  Serious: No
  Sender: FDA-Public Use
  Company Number: US-KALEO, INC.-2021KL000024

PATIENT
  Age: 3 Year
  Sex: Male

DRUGS (1)
  1. AUVI?Q [Suspect]
     Active Substance: EPINEPHRINE

REACTIONS (3)
  - Device leakage [Not Recovered/Not Resolved]
  - Device issue [Not Recovered/Not Resolved]
  - Product colour issue [Not Recovered/Not Resolved]
